FAERS Safety Report 6545606-9 (Version None)
Quarter: 2010Q1

REPORT INFORMATION
  Report Type: 
  Country: None (occurrence: None)
  Receive Date: 20100121
  Receipt Date: 20100112
  Transmission Date: 20100710
  Serious: Yes (Hospitalization)
  Sender: FDA-Public Use
  Company Number: IT-BAXTER-2009BH018834

PATIENT
  Age: 71 Year
  Sex: Female

DRUGS (8)
  1. ENDOXAN BAXTER [Suspect]
     Indication: B-CELL LYMPHOMA
     Route: 042
     Dates: start: 20090116, end: 20090123
  2. ENDOXAN BAXTER [Suspect]
     Route: 065
     Dates: start: 20090313, end: 20090801
  3. MABTHERA [Suspect]
     Indication: B-CELL LYMPHOMA
     Route: 042
     Dates: start: 20090123, end: 20090123
  4. MABTHERA [Suspect]
     Route: 065
     Dates: start: 20090313, end: 20090801
  5. DOXORUBICIN HCL [Suspect]
     Indication: B-CELL LYMPHOMA
     Route: 042
     Dates: start: 20090116, end: 20090123
  6. VINCRISTINE SULFATE [Suspect]
     Indication: B-CELL LYMPHOMA
     Route: 042
     Dates: start: 20090116, end: 20090123
  7. DELTACORTENE [Suspect]
     Indication: B-CELL LYMPHOMA
     Route: 048
     Dates: start: 20090116, end: 20090123
  8. DELTACORTENE [Suspect]
     Route: 065
     Dates: start: 20090101, end: 20090801

REACTIONS (3)
  - BRONCHOPNEUMONIA [None]
  - ILEUS PARALYTIC [None]
  - NEUTROPENIA [None]
